FAERS Safety Report 5052044-7 (Version None)
Quarter: 2006Q3

REPORT INFORMATION
  Report Type: 
  Country: None (occurrence: None)
  Receive Date: 20060711
  Receipt Date: 20060620
  Transmission Date: 20061208
  Serious: Yes (Death)
  Sender: FDA-Public Use
  Company Number: FR200604004085

PATIENT
  Age: 68 Year
  Sex: Female
  Weight: 55 kg

DRUGS (3)
  1. FORTEO [Suspect]
     Indication: OSTEOPOROSIS
     Dosage: 20 UG DAILY (1/D), SUBCUTANEOUS
     Route: 058
     Dates: start: 20041018
  2. FORTEO [Concomitant]
  3. FIXICAL VITAMINE D3 (CALCIUM CARBONATE, COLECALCIFEROL) [Concomitant]

REACTIONS (1)
  - SUDDEN DEATH [None]
